FAERS Safety Report 4295477-9 (Version None)
Quarter: 2004Q1

REPORT INFORMATION
  Report Type: 
  Country: None (occurrence: None)
  Receive Date: 20040211
  Receipt Date: 20040128
  Transmission Date: 20041129
  Serious: Yes (Life-Threatening, Hospitalization)
  Sender: FDA-Public Use
  Company Number: 2002-BP-06447BP

PATIENT
  Age: 64 Year
  Sex: Male

DRUGS (15)
  1. MICARDIS [Suspect]
     Indication: CARDIOVASCULAR DISORDER
     Dosage: 80 MG (80 MG), PO
     Route: 048
     Dates: start: 20021004, end: 20020101
  2. MICARDIS [Suspect]
     Indication: CEREBROVASCULAR ACCIDENT
     Dosage: 80 MG (80 MG), PO
     Route: 048
     Dates: start: 20021004, end: 20020101
  3. MICARDIS [Suspect]
     Indication: MYOCARDIAL INFARCTION
     Dosage: 80 MG (80 MG), PO
     Route: 048
     Dates: start: 20021004, end: 20020101
  4. MICARDIS [Suspect]
     Indication: PROPHYLAXIS
     Dosage: 80 MG (80 MG), PO
     Route: 048
     Dates: start: 20021004, end: 20020101
  5. RAMIPRIL [Suspect]
     Indication: CARDIOVASCULAR DISORDER
     Dosage: 10 MG (10 MG), PO
     Route: 048
     Dates: start: 20021004
  6. RAMIPRIL [Suspect]
     Indication: CEREBROVASCULAR ACCIDENT
     Dosage: 10 MG (10 MG), PO
     Route: 048
     Dates: start: 20021004
  7. RAMIPRIL [Suspect]
     Indication: MYOCARDIAL INFARCTION
     Dosage: 10 MG (10 MG), PO
     Route: 048
     Dates: start: 20021004
  8. RAMIPRIL [Suspect]
     Indication: PROPHYLAXIS
     Dosage: 10 MG (10 MG), PO
     Route: 048
     Dates: start: 20021004
  9. GEMFIBROZIL [Concomitant]
  10. TAMSULOSIN (NR) [Concomitant]
  11. AMLODIPINE BESYLATE [Concomitant]
  12. ASPIRIN [Concomitant]
  13. ATENOLOL (ATENOLOL) (NR) [Concomitant]
  14. OMEPRAZOLE [Concomitant]
  15. ATORZASTATIN (NR) [Concomitant]

REACTIONS (1)
  - IDIOPATHIC THROMBOCYTOPENIC PURPURA [None]
